FAERS Safety Report 14951693 (Version 5)
Quarter: 2019Q3

REPORT INFORMATION
  Report Type: Report from Study
  Country: IL (occurrence: IL)
  Receive Date: 20180530
  Receipt Date: 20190712
  Transmission Date: 20191004
  Serious: Yes (Hospitalization)
  Sender: FDA-Public Use
  Company Number: IL-ROCHE-2128891

PATIENT
  Age: 55 Year
  Sex: Female
  Weight: 84 kg

DRUGS (12)
  1. IMODIUM [Concomitant]
     Active Substance: LOPERAMIDE HYDROCHLORIDE
     Indication: DIARRHOEA
     Route: 048
  2. GLUCOMIN [Concomitant]
     Active Substance: METFORMIN HYDROCHLORIDE
     Indication: DIABETES MELLITUS
     Route: 048
  3. LIPITOR [Concomitant]
     Active Substance: ATORVASTATIN CALCIUM
     Indication: HYPERLIPIDAEMIA
     Route: 048
  4. ALL OTHER THERAPEUTIC PRODUCTS [Concomitant]
     Active Substance: UNSPECIFIED INGREDIENT
     Indication: BLOOD CREATININE INCREASED
     Dosage: FREQUENCY OTHER
     Route: 042
     Dates: start: 20180423, end: 20180423
  5. PRAMIN [METOCLOPRAMIDE HYDROCHLORIDE] [Concomitant]
     Active Substance: METOCLOPRAMIDE HYDROCHLORIDE
     Indication: NAUSEA
     Route: 048
     Dates: start: 20171121
  6. COBIMETINIB. [Suspect]
     Active Substance: COBIMETINIB
     Indication: METASTATIC MALIGNANT MELANOMA
     Dosage: THREE, 20 MG TABLETS ON DAY 1 TO 21?MOST RECENT DOSE OF COBIMETINIB (40 MG) ON 17/APR/2018
     Route: 048
     Dates: start: 20170925
  7. NEOBLOC [Concomitant]
     Indication: HYPERTENSION
     Route: 048
  8. ATEZOLIZUMAB. [Suspect]
     Active Substance: ATEZOLIZUMAB
     Indication: METASTATIC MALIGNANT MELANOMA
     Dosage: MOST RECENT DOSE OF BLINDED ATEZOLIZUMAB ON 9/APR/2018
     Route: 042
     Dates: start: 20171023
  9. OCSAAR [LOSARTAN POTASSIUM] [Concomitant]
     Indication: MYOCARDIAL ISCHAEMIA
     Route: 048
  10. VEMURAFENIB. [Suspect]
     Active Substance: VEMURAFENIB
     Indication: METASTATIC MALIGNANT MELANOMA
     Dosage: MOST RECENT DOSE OF VEMURAFENIB ON 17/APR/2018: 4DF
     Route: 048
     Dates: start: 20170925
  11. MICROPIRIN [Concomitant]
     Active Substance: ASPIRIN
     Indication: MYOCARDIAL ISCHAEMIA
     Route: 048
  12. CIPRALEX [Concomitant]
     Active Substance: ESCITALOPRAM OXALATE
     Indication: MOOD SWINGS
     Route: 048
     Dates: start: 201710

REACTIONS (2)
  - Syncope [Recovered/Resolved]
  - Dizziness [Recovered/Resolved]

NARRATIVE: CASE EVENT DATE: 20180415
